FAERS Safety Report 7851688 (Version 3)
Quarter: 2013Q4

REPORT INFORMATION
  Report Type: Spontaneous
  Country: US (occurrence: US)
  Receive Date: 20110311
  Receipt Date: 20131115
  Transmission Date: 20140711
  Serious: Yes (Hospitalization, Other)
  Sender: FDA-Public Use
  Company Number: US-BAYER-2011-020974

PATIENT
  Age: 28 Year
  Sex: Female
  Weight: 79.37 kg

DRUGS (8)
  1. YAZ [Suspect]
     Indication: ORAL CONTRACEPTION
     Dosage: UNK
     Dates: start: 2008, end: 2008
  2. YASMIN [Suspect]
     Indication: ORAL CONTRACEPTION
     Dosage: UNK
     Dates: start: 2008, end: 2008
  3. ZOLOFT [Concomitant]
     Dosage: UNK
     Route: 048
     Dates: start: 200601
  4. NSAID^S [Concomitant]
     Dosage: UNK UNK, PRN
     Route: 048
  5. XANAX [Concomitant]
  6. DEPAKOTE [Concomitant]
  7. PLAN B [Concomitant]
  8. SERTRALINE [Concomitant]

REACTIONS (5)
  - Gallbladder disorder [None]
  - Cholecystitis acute [None]
  - Injury [None]
  - Pain [None]
  - Anxiety [None]
